FAERS Safety Report 9780976 (Version 1)
Quarter: 2013Q4

REPORT INFORMATION
  Report Type: Spontaneous
  Country: FR (occurrence: FR)
  Receive Date: 20131224
  Receipt Date: 20131224
  Transmission Date: 20140711
  Serious: Yes (Hospitalization)
  Sender: FDA-Public Use
  Company Number: FR-MERCK-1312FRA007014

PATIENT
  Age: 76 Year
  Sex: Female

DRUGS (8)
  1. EZETROL [Suspect]
     Dosage: 10 MG, QD
     Route: 048
     Dates: end: 20131125
  2. PLAQUENIL [Suspect]
     Indication: POLYMYALGIA RHEUMATICA
     Dosage: UNK
     Route: 048
     Dates: start: 20131019, end: 20131125
  3. COTAREG [Concomitant]
     Dosage: UNK
  4. CIPRALAN [Concomitant]
  5. KARDEGIC [Concomitant]
     Dosage: UNK
  6. LEVOTHYROX [Concomitant]
     Dosage: UNK
  7. CORTANCYL [Concomitant]
     Dosage: 8 MG, QD
  8. TANGANIL [Concomitant]
     Dosage: UNK

REACTIONS (4)
  - Drug reaction with eosinophilia and systemic symptoms [Recovered/Resolved]
  - Eosinophilia [Recovered/Resolved]
  - Renal failure acute [Recovered/Resolved]
  - Rash [Recovered/Resolved]
